FAERS Safety Report 19799712 (Version 3)
Quarter: 2021Q4

REPORT INFORMATION
  Report Type: Report from Study
  Country: US (occurrence: US)
  Receive Date: 20210907
  Receipt Date: 20211109
  Transmission Date: 20220303
  Serious: Yes (Hospitalization)
  Sender: FDA-Public Use
  Company Number: US-ELI_LILLY_AND_COMPANY-US202108012637

PATIENT
  Sex: Female

DRUGS (1)
  1. TRULICITY [Suspect]
     Active Substance: DULAGLUTIDE
     Indication: Diabetes mellitus
     Dosage: 0.75 MG, WEEKLY (1/W)
     Route: 065
     Dates: start: 2019

REACTIONS (5)
  - Jugular vein occlusion [Unknown]
  - Blood glucose increased [Unknown]
  - COVID-19 [Recovered/Resolved]
  - Blood glucose increased [Unknown]
  - Injection site discolouration [Unknown]
